FAERS Safety Report 16765886 (Version 2)
Quarter: 2019Q3

REPORT INFORMATION
  Report Type: Spontaneous
  Country: JP (occurrence: JP)
  Receive Date: 20190903
  Receipt Date: 20190910
  Transmission Date: 20191005
  Serious: Yes (Death)
  Sender: FDA-Public Use
  Company Number: JP-EISAI MEDICAL RESEARCH-EC-2019-050801

PATIENT
  Sex: Male

DRUGS (5)
  1. LENVIMA [Suspect]
     Active Substance: LENVATINIB
     Indication: HEPATOCELLULAR CARCINOMA
     Route: 048
     Dates: start: 201906, end: 2019
  2. LENVIMA [Suspect]
     Active Substance: LENVATINIB
     Route: 048
     Dates: start: 2019, end: 2019
  3. LENVIMA [Suspect]
     Active Substance: LENVATINIB
     Route: 048
     Dates: start: 2019, end: 2019
  4. NEXAVAR [Suspect]
     Active Substance: SORAFENIB
     Indication: METASTASIS
     Dosage: DOSE AND FREQUENCY UNKNOWN
     Route: 065
  5. NEXAVAR [Suspect]
     Active Substance: SORAFENIB
     Indication: HEPATOCELLULAR CARCINOMA
     Dosage: DOSE AND FREQUENCY UNKNOWN
     Route: 065
     Dates: start: 2018

REACTIONS (3)
  - Blood pressure increased [Recovering/Resolving]
  - Thrombotic microangiopathy [Recovered/Resolved]
  - Protein urine present [Recovering/Resolving]

NARRATIVE: CASE EVENT DATE: 2019
